FAERS Safety Report 5526092-4 (Version None)
Quarter: 2007Q4

REPORT INFORMATION
  Report Type: 
  Country: None (occurrence: None)
  Receive Date: 20071120
  Receipt Date: 20071105
  Transmission Date: 20080405
  Serious: Yes (Death, Hospitalization)
  Sender: FDA-Public Use
  Company Number: 100#08#2007-04541

PATIENT
  Age: 56 Year
  Sex: Female

DRUGS (6)
  1. CYCLOSPORINE [Suspect]
     Indication: PROPHYLAXIS AGAINST GRAFT VERSUS HOST DISEASE
     Dosage: 5 MG/KG/DAY, DAILY DOSES WERE REDUCED
  2. METHOTREXATE [Suspect]
     Indication: PROPHYLAXIS
     Dosage: 15 MG INTRATHECAL
     Route: 037
  3. FLUDARABINE (FLUDARABINE) (FLUDARABINE) [Suspect]
     Dosage: 30 MG/M2
  4. CARMUSTINE (CARMUSTINE) (CARMUSTINE) [Concomitant]
  5. MELPHALAN (MELPHALAN) (MELPHALAN) [Concomitant]
  6. MYCOPHENOLATE MOFETIL [Concomitant]

REACTIONS (14)
  - ACUTE GRAFT VERSUS HOST DISEASE IN SKIN [None]
  - ACUTE RESPIRATORY DISTRESS SYNDROME [None]
  - BLOOD LACTATE DEHYDROGENASE INCREASED [None]
  - COMA [None]
  - CONVULSION [None]
  - EYELID PTOSIS [None]
  - HYPERTENSION [None]
  - LEUKOENCEPHALOPATHY [None]
  - MUCOSAL INFLAMMATION [None]
  - MUSCULAR WEAKNESS [None]
  - NEUROTOXICITY [None]
  - PNEUMONIA [None]
  - RENAL IMPAIRMENT [None]
  - SOMNOLENCE [None]
